FAERS Safety Report 24916346 (Version 1)
Quarter: 2025Q1

REPORT INFORMATION
  Report Type: Spontaneous
  Country: US (occurrence: None)
  Receive Date: 20250131
  Receipt Date: 20250131
  Transmission Date: 20250408
  Serious: Yes (Hospitalization)
  Sender: FDA-CTU
  Company Number: None

PATIENT
  Age: 67 Year
  Sex: Male

DRUGS (1)
  1. LISINOPRIL [Suspect]
     Active Substance: LISINOPRIL
     Dosage: FREQUENCY : DAILY;?
     Route: 048
     Dates: start: 20240725, end: 20240802

REACTIONS (9)
  - Angioedema [None]
  - Conjunctival oedema [None]
  - Tongue oedema [None]
  - Lip swelling [None]
  - Pruritus [None]
  - Throat tightness [None]
  - Rash [None]
  - Periorbital swelling [None]
  - Pharyngeal swelling [None]

NARRATIVE: CASE EVENT DATE: 20240801
